FAERS Safety Report 6318704-2 (Version None)
Quarter: 2009Q3

REPORT INFORMATION
  Report Type: 
  Country: None (occurrence: None)
  Receive Date: 20090821
  Receipt Date: 20090817
  Transmission Date: 20100115
  Serious: Yes (Other)
  Sender: FDA-Public Use
  Company Number: PHHY2009BR34629

PATIENT
  Sex: Female
  Weight: 58 kg

DRUGS (3)
  1. EXELON [Suspect]
     Indication: MEMORY IMPAIRMENT
     Dosage: 1 PATCH (9 MG) EVERY 24 HOURS
     Route: 062
     Dates: start: 20081001
  2. EXELON [Suspect]
     Dosage: 1 PATCH (18 MG) EVERY 24HOURS
     Route: 062
     Dates: start: 20090101
  3. EXELON [Suspect]
     Dosage: 1 PATCH (9 MG) EVERY 24 HOURS
     Route: 062

REACTIONS (3)
  - CONCOMITANT DISEASE AGGRAVATED [None]
  - DIZZINESS [None]
  - LABYRINTHITIS [None]
